FAERS Safety Report 12889884 (Version 3)
Quarter: 2016Q4

REPORT INFORMATION
  Report Type: Report from Study
  Country: US (occurrence: US)
  Receive Date: 20161027
  Receipt Date: 20161230
  Transmission Date: 20170207
  Serious: No
  Sender: FDA-Public Use
  Company Number: PHEH2016US027272

PATIENT
  Age: 9 Year
  Sex: Female

DRUGS (2)
  1. ILARIS [Suspect]
     Active Substance: CANAKINUMAB
     Indication: JUVENILE IDIOPATHIC ARTHRITIS
     Dosage: UNK
     Route: 065
     Dates: start: 20160801
  2. ILARIS [Suspect]
     Active Substance: CANAKINUMAB
     Dosage: 0.47ML (100MG)
     Route: 058
     Dates: start: 20161017

REACTIONS (8)
  - Pain in extremity [Unknown]
  - Joint swelling [Recovered/Resolved with Sequelae]
  - Decreased appetite [Recovered/Resolved with Sequelae]
  - Weight decreased [Recovered/Resolved with Sequelae]
  - Abdominal pain [Unknown]
  - Arthralgia [Unknown]
  - Gait disturbance [Unknown]
  - Arthritis [Unknown]

NARRATIVE: CASE EVENT DATE: 20161017
